FAERS Safety Report 17414620 (Version 2)
Quarter: 2022Q1

REPORT INFORMATION
  Report Type: Report from Study
  Country: US (occurrence: US)
  Receive Date: 20200213
  Receipt Date: 20220107
  Transmission Date: 20220423
  Serious: Yes (Hospitalization, Other)
  Sender: FDA-Public Use
  Company Number: US-PFIZER INC-2020046573

PATIENT
  Age: 17 Year
  Sex: Male
  Weight: 55.5 kg

DRUGS (4)
  1. TEMSIROLIMUS [Suspect]
     Active Substance: TEMSIROLIMUS
     Indication: Embryonal rhabdomyosarcoma
     Dosage: 24 MG, CYCLIC (DAY 1, 8 AND 15 OF CYCLE 1 - DAYS 8 AND 15 SKIPPED)
     Route: 042
     Dates: start: 20191228, end: 20191228
  2. VINCRISTINE SULFATE [Suspect]
     Active Substance: VINCRISTINE SULFATE
     Indication: Embryonal rhabdomyosarcoma
     Dosage: 1.5 MG/KG, CYCLIC (ON DAYS 1, 8 AND 15 OF CYCLE 1)
     Route: 042
     Dates: start: 20191228, end: 20200110
  3. CYCLOPHOSPHAMIDE [Suspect]
     Active Substance: CYCLOPHOSPHAMIDE
     Indication: Embryonal rhabdomyosarcoma
     Dosage: 1920 MG, CYCLIC (DAY 1 OF CYCLE 1)
     Route: 042
     Dates: start: 20191228, end: 20191228
  4. DACTINOMYCIN [Suspect]
     Active Substance: DACTINOMYCIN
     Indication: Embryonal rhabdomyosarcoma
     Dosage: 2.5 MG, CYCLIC (DAY 1 OF CYCLE 1)
     Route: 042
     Dates: start: 20191228, end: 20191228

REACTIONS (2)
  - Device related infection [Unknown]
  - Pyrexia [Recovered/Resolved]

NARRATIVE: CASE EVENT DATE: 20200111
